FAERS Safety Report 10810369 (Version 1)
Quarter: 2015Q1

REPORT INFORMATION
  Report Type: Spontaneous
  Country: US (occurrence: None)
  Receive Date: 20150212
  Receipt Date: 20150212
  Transmission Date: 20150721
  Serious: Yes (Hospitalization, Disabling, Other)
  Sender: FDA-Public Use
  Company Number: None

PATIENT
  Age: 54 Year
  Sex: Male
  Weight: 81.65 kg

DRUGS (1)
  1. PREDNISONE 20MG [Suspect]
     Active Substance: PREDNISONE
     Indication: JOINT INJURY
     Dosage: 2 WITH BREAKFAST, 1 WITH LUNCH 3 TIMES?1 WITH BREAKFAST, 3 DAYS
     Route: 048
     Dates: start: 20140914, end: 20140918

REACTIONS (14)
  - Weight increased [None]
  - Nervousness [None]
  - Palpitations [None]
  - Drug hypersensitivity [None]
  - Hypertension [None]
  - Burning sensation [None]
  - Blood pressure increased [None]
  - Pyrexia [None]
  - Dyspnoea [None]
  - Extrasystoles [None]
  - Memory impairment [None]
  - Haemoptysis [None]
  - Psychomotor hyperactivity [None]
  - Atrial fibrillation [None]
